FAERS Safety Report 18257847 (Version 4)
Quarter: 2020Q4

REPORT INFORMATION
  Report Type: Spontaneous
  Country: US (occurrence: US)
  Receive Date: 20200911
  Receipt Date: 20201110
  Transmission Date: 20210113
  Serious: No
  Sender: FDA-Public Use
  Company Number: US-PFIZER INC-2020097472

PATIENT
  Age: 55 Year
  Sex: Male
  Weight: 90.25 kg

DRUGS (4)
  1. CIALIS [Concomitant]
     Active Substance: TADALAFIL
     Dosage: UNK, AS NEEDED (PRN)
     Dates: start: 20200204
  2. LISINOPRIL/HCTZ [Concomitant]
     Active Substance: HYDROCHLOROTHIAZIDE\LISINOPRIL
     Indication: HYPERTENSION
     Dosage: UNK, 1X/DAY
     Dates: start: 20180605
  3. CHANTIX [Suspect]
     Active Substance: VARENICLINE TARTRATE
     Indication: SMOKING CESSATION THERAPY
     Dosage: UNK (STRENGTH: 0.5/1 MG; QUANTITY FOR 90 DAYS: 53/112)
     Route: 048
     Dates: start: 20200121
  4. CHANTIX [Suspect]
     Active Substance: VARENICLINE TARTRATE
     Dosage: 1 DF, 1X/DAY
     Route: 048

REACTIONS (3)
  - Depression [Not Recovered/Not Resolved]
  - Stress [Not Recovered/Not Resolved]
  - Anxiety [Not Recovered/Not Resolved]

NARRATIVE: CASE EVENT DATE: 20200124
